FAERS Safety Report 13677927 (Version 1)
Quarter: 2017Q2

REPORT INFORMATION
  Report Type: Spontaneous
  Country: US (occurrence: US)
  Receive Date: 20170622
  Receipt Date: 20170622
  Transmission Date: 20170830
  Serious: No
  Sender: FDA-Public Use
  Company Number: US-BAUSCH-BL-2016-021327

PATIENT
  Age: 76 Year
  Sex: Male
  Weight: 131.3 kg

DRUGS (8)
  1. XGEVA [Suspect]
     Active Substance: DENOSUMAB
     Indication: METASTASES TO BONE
     Route: 065
  2. PROVENGE [Suspect]
     Active Substance: SIPULEUCEL-T
     Indication: HORMONE-REFRACTORY PROSTATE CANCER
     Route: 042
     Dates: start: 20160804, end: 20160804
  3. PROVENGE [Suspect]
     Active Substance: SIPULEUCEL-T
     Route: 042
     Dates: start: 20160818, end: 20160818
  4. LEVAQUIN [Concomitant]
     Active Substance: LEVOFLOXACIN
     Indication: PRODUCT USED FOR UNKNOWN INDICATION
  5. CALCIUM PLUS VITAMIN D [Suspect]
     Active Substance: CALCIUM\VITAMIN D
     Indication: PRODUCT USED FOR UNKNOWN INDICATION
     Route: 065
  6. LISINOPRIL AND HYDROCHLOROTHIAZIDE [Concomitant]
     Active Substance: HYDROCHLOROTHIAZIDE\LISINOPRIL
     Indication: PRODUCT USED FOR UNKNOWN INDICATION
     Dosage: 20/12.5 MG DAILY
  7. CALCIUM PLUS VITAMIN D [Suspect]
     Active Substance: CALCIUM\VITAMIN D
     Route: 042
     Dates: start: 20160818, end: 20160818
  8. XGEVA [Suspect]
     Active Substance: DENOSUMAB
     Route: 042
     Dates: start: 20160818, end: 20160818

REACTIONS (3)
  - Urinary incontinence [Unknown]
  - Hypersensitivity [Unknown]
  - Culture positive [Unknown]

NARRATIVE: CASE EVENT DATE: 201608
